FAERS Safety Report 14165585 (Version 1)
Quarter: 2017Q4

REPORT INFORMATION
  Report Type: Spontaneous
  Country: GB (occurrence: GB)
  Receive Date: 20171107
  Receipt Date: 20171107
  Transmission Date: 20180321
  Serious: Yes (Disabling)
  Sender: FDA-Public Use
  Company Number: GB-AUROBINDO-AUR-APL-2017-43339

PATIENT
  Sex: Female

DRUGS (3)
  1. CEFALEXIN TABLETS [Suspect]
     Active Substance: CEPHALEXIN
     Indication: URINARY TRACT INFECTION
     Dosage: 250 MG, FOUR TIMES/DAY
     Route: 065
  2. CEFALEXIN TABLETS [Suspect]
     Active Substance: CEPHALEXIN
     Dosage: 500 MG, TWO TIMES A DAY
     Route: 065
  3. TRIMETHOPRIM. [Concomitant]
     Active Substance: TRIMETHOPRIM
     Indication: URINARY TRACT INFECTION
     Dosage: 200 MG, TWO TIMES A DAY
     Route: 065

REACTIONS (4)
  - Vomiting [Unknown]
  - Abdominal pain upper [Unknown]
  - Vomiting projectile [Unknown]
  - Somnolence [Unknown]
